FAERS Safety Report 10664685 (Version 1)
Quarter: 2014Q4

REPORT INFORMATION
  Report Type: Spontaneous
  Country: US (occurrence: None)
  Receive Date: 20141205
  Receipt Date: 20141205
  Transmission Date: 20150529
  Serious: Yes (Other)
  Sender: FDA-Public Use
  Company Number: 163-POMAL-14070538

PATIENT
  Age: 77 Year
  Sex: Female
  Weight: 152.4 kg

DRUGS (10)
  1. METOPROLOL TARTRATE. [Concomitant]
     Active Substance: METOPROLOL TARTRATE
  2. HYDRALAZINE [Concomitant]
     Active Substance: HYDRALAZINE HYDROCHLORIDE
  3. POMALYST [Suspect]
     Active Substance: POMALIDOMIDE
     Indication: PLASMA CELL MYELOMA
     Dosage: 21 IN 28D, PO
     Route: 048
     Dates: start: 20140509, end: 20140812
  4. ENALAPRIL [Concomitant]
     Active Substance: ENALAPRIL
  5. PROCHLORPERAZINE. [Concomitant]
     Active Substance: PROCHLORPERAZINE
  6. PRILOSEC [Concomitant]
     Active Substance: OMEPRAZOLE MAGNESIUM
  7. ZOMETA [Concomitant]
     Active Substance: ZOLEDRONIC ACID
  8. CENTRUM SILVER [Concomitant]
     Active Substance: VITAMINS
  9. DEXAMETHASONE. [Concomitant]
     Active Substance: DEXAMETHASONE
  10. AMLODIPINE [Concomitant]
     Active Substance: AMLODIPINE BESYLATE

REACTIONS (2)
  - Muscle spasms [None]
  - Renal failure [None]

NARRATIVE: CASE EVENT DATE: 201408
